FAERS Safety Report 10344678 (Version 2)
Quarter: 2014Q3

REPORT INFORMATION
  Report Type: Spontaneous
  Country: SE (occurrence: None)
  Receive Date: 20140724
  Receipt Date: 20140729
  Transmission Date: 20150326
  Serious: Yes (Other)
  Sender: FDA-Public Use
  Company Number: AUR-APL-2014-07864

PATIENT
  Age: 63 Year
  Sex: Female

DRUGS (1)
  1. AMLODIPINE [Suspect]
     Active Substance: AMLODIPINE BESYLATE
     Indication: HYPERTENSION
     Route: 048
     Dates: start: 20140605, end: 20140625

REACTIONS (6)
  - Pain in extremity [None]
  - Musculoskeletal stiffness [None]
  - Paraesthesia [None]
  - Depressed mood [None]
  - Arthralgia [None]
  - Muscular weakness [None]

NARRATIVE: CASE EVENT DATE: 20140605
